FAERS Safety Report 7629160-6 (Version None)
Quarter: 2011Q3

REPORT INFORMATION
  Report Type: 
  Country: None (occurrence: None)
  Receive Date: 20110722
  Receipt Date: 20110711
  Transmission Date: 20111222
  Serious: Yes (Hospitalization)
  Sender: FDA-Public Use
  Company Number: PHFR2011GB02913

PATIENT
  Sex: Female

DRUGS (9)
  1. MIRTAZAPINE [Concomitant]
     Dosage: UNK
  2. ACETAMINOPHEN AND CODEINE PHOSPHATE [Concomitant]
  3. RISPERIDONE [Concomitant]
  4. AMISULPRIDE [Suspect]
     Dosage: 150 MG/DAY
  5. CETIRIZINE HCL [Concomitant]
     Dosage: 10 MG/DAY
  6. CITALOPRAM HYDROBROMIDE [Concomitant]
     Dosage: 10 MG/DAY
  7. CLONAZEPAM [Concomitant]
     Dosage: 0.5 MG/DAY
  8. ZOPICLONE [Concomitant]
     Dosage: 7.5 MG/DAY
  9. CLOZAPINE [Suspect]
     Indication: SCHIZOPHRENIA
     Dosage: 50 MG/DAY
     Route: 048
     Dates: start: 20070629, end: 20110301

REACTIONS (5)
  - HYPOPHAGIA [None]
  - MOBILITY DECREASED [None]
  - DEHYDRATION [None]
  - MALAISE [None]
  - PSYCHOTIC DISORDER [None]
